FAERS Safety Report 9981116 (Version 1)
Quarter: 2014Q1

REPORT INFORMATION
  Report Type: Spontaneous
  Country: US (occurrence: US)
  Receive Date: 20140307
  Receipt Date: 20140307
  Transmission Date: 20141002
  Serious: No
  Sender: FDA-Public Use
  Company Number: US-PFIZER INC-2014065696

PATIENT
  Age: 55 Year
  Sex: Female
  Weight: 68.03 kg

DRUGS (3)
  1. NICOTROL INHALER [Suspect]
     Indication: SMOKING CESSATION THERAPY
     Dosage: UNK
     Dates: start: 20140303, end: 20140304
  2. CYMBALTA [Concomitant]
     Indication: DEPRESSION
     Dosage: 50 MG, 2X/DAY
  3. METHYLPHENIDATE [Concomitant]
     Indication: ATTENTION DEFICIT/HYPERACTIVITY DISORDER
     Dosage: 5 MG, 3X/DAY

REACTIONS (2)
  - Drug ineffective [Unknown]
  - Product quality issue [Unknown]
